FAERS Safety Report 5502798-8 (Version None)
Quarter: 2007Q4

REPORT INFORMATION
  Report Type: 
  Country: None (occurrence: None)
  Receive Date: 20071029
  Receipt Date: 20071012
  Transmission Date: 20080405
  Serious: Yes (Other)
  Sender: FDA-Public Use
  Company Number: PRA1-2007-00031

PATIENT
  Age: 13 Year
  Sex: Female
  Weight: 59.9 kg

DRUGS (4)
  1. LISDEXAMFETAMINE DIMESYLATE [Suspect]
     Indication: ATTENTION DEFICIT/HYPERACTIVITY DISORDER
     Dosage: 60 MG, 1X/DAY:QD, ORAL
     Route: 048
     Dates: start: 20070804, end: 20070920
  2. ONE -A-DAY WOMEN'S (ACACIA SENEGAL, ASCORBIC ACID, BETACAROTENE, CALCI [Concomitant]
  3. IBUPROFEN [Concomitant]
  4. MIDOL [Concomitant]

REACTIONS (4)
  - AFFECT LABILITY [None]
  - CONDITION AGGRAVATED [None]
  - SYNCOPE [None]
  - VISION BLURRED [None]
